FAERS Safety Report 26101690 (Version 1)
Quarter: 2025Q4

REPORT INFORMATION
  Report Type: Spontaneous
  Country: EU (occurrence: EU)
  Receive Date: 20251128
  Receipt Date: 20251128
  Transmission Date: 20260117
  Serious: Yes (Other)
  Sender: SANDOZ
  Company Number: EU-BRISTOL-MYERS SQUIBB COMPANY-2024-150923

PATIENT
  Age: 86 Year
  Sex: Male

DRUGS (11)
  1. ASPIRIN [Suspect]
     Active Substance: ASPIRIN
     Indication: Product used for unknown indication
     Dosage: UNK
     Route: 065
     Dates: start: 2024
  2. ELIQUIS [Suspect]
     Active Substance: APIXABAN
     Dosage: 1.25 MG, QD,2006-03-14 00:00:00/1
     Route: 065
  3. ELIQUIS [Suspect]
     Active Substance: APIXABAN
     Dosage: 2.5 MG, 2006-03-14 00:00:00/1
     Route: 065
     Dates: start: 202408
  4. ELIQUIS [Suspect]
     Active Substance: APIXABAN
     Dosage: 4 DF, 2006-03-14 00:00:00/1
     Route: 065
     Dates: start: 202406
  5. ELIQUIS [Suspect]
     Active Substance: APIXABAN
     Indication: Atrial fibrillation
     Dosage: 5 MG,2006-03-14 00:00:00/1
     Route: 065
     Dates: start: 202401
  6. HEPARIN [Concomitant]
     Active Substance: HEPARIN SODIUM
     Indication: Product used for unknown indication
     Dosage: 2006-03-14 00:00:00/1
     Route: 065
  7. METOPROLOL [Concomitant]
     Active Substance: METOPROLOL
     Indication: Product used for unknown indication
     Dosage: UNK
     Route: 065
  8. Novodigal [Concomitant]
     Dosage: 0.1 MG
     Route: 065
  9. Novodigal [Concomitant]
     Indication: Product used for unknown indication
     Dosage: 0.2 MG
     Route: 065
  10. RAMIPRIL [Concomitant]
     Active Substance: RAMIPRIL
     Indication: Hypertension
     Dosage: 5 MG
     Route: 065
  11. RAMIPRIL [Concomitant]
     Active Substance: RAMIPRIL
     Dosage: 5 MG
     Route: 065

REACTIONS (11)
  - Renal impairment [Unknown]
  - Penile haemorrhage [Unknown]
  - Urinary retention [Unknown]
  - Haematuria [Unknown]
  - Haemorrhage [Unknown]
  - Liver function test abnormal [Unknown]
  - Rash [Recovering/Resolving]
  - Pruritus [Recovering/Resolving]
  - Abdominal pain lower [Unknown]
  - Catheter site haemorrhage [Unknown]
  - Incorrect dose administered [Unknown]

NARRATIVE: CASE EVENT DATE: 20240101
